FAERS Safety Report 8850537 (Version 1)
Quarter: 2012Q4

REPORT INFORMATION
  Report Type: 
  Country: US (occurrence: US)
  Receive Date: 20121019
  Receipt Date: 20121019
  Transmission Date: 20130627
  Serious: Yes (Other)
  Sender: FDA-Public Use
  Company Number: CHPA2012US021734

PATIENT
  Age: 66 Year
  Sex: Male

DRUGS (2)
  1. BENEFIBER SUGAR FREE [Suspect]
     Dosage: UNK
     Route: 048
     Dates: start: 2005, end: 2012
  2. PRILOSEC [Concomitant]
     Dosage: UNK
     Dates: start: 2012

REACTIONS (2)
  - Blindness [Not Recovered/Not Resolved]
  - Condition aggravated [Not Recovered/Not Resolved]
